FAERS Safety Report 8469517-7 (Version None)
Quarter: 2012Q2

REPORT INFORMATION
  Report Type: 
  Country: None (occurrence: None)
  Receive Date: 20120626
  Receipt Date: 20120625
  Transmission Date: 20120825
  Serious: Yes (Other)
  Sender: FDA-Public Use
  Company Number: DE-JNJFOC-20110801101

PATIENT
  Age: 69 Year
  Sex: Male

DRUGS (2)
  1. ABCIXIMAB [Suspect]
     Indication: MYOCARDIAL INFARCTION
     Dosage: IV DRIP; DURATION- 11 HOURS 30 MIN
     Route: 042
     Dates: start: 20100623
  2. ABCIXIMAB [Suspect]
     Dosage: BOLUS DOSE
     Route: 042
     Dates: start: 20100623

REACTIONS (1)
  - PERICARDIAL EFFUSION [None]
